FAERS Safety Report 6920937-9 (Version None)
Quarter: 2010Q3

REPORT INFORMATION
  Report Type: 
  Country: None (occurrence: None)
  Receive Date: 20100812
  Receipt Date: 20100802
  Transmission Date: 20110219
  Serious: Yes (Hospitalization)
  Sender: FDA-Public Use
  Company Number: JP-PFIZER INC-2010086062

PATIENT
  Age: 41 Year
  Sex: Male
  Weight: 53 kg

DRUGS (9)
  1. SUNITINIB MALATE [Suspect]
     Indication: RENAL CELL CARCINOMA
     Dosage: 37.5 MG, 1X/DAY
     Route: 048
     Dates: start: 20090819, end: 20090915
  2. LOXONIN [Concomitant]
     Dosage: 60 MG, 3X/DAY
     Route: 048
  3. SELBEX [Concomitant]
     Dosage: 50 MG, 3X/DAY
     Route: 048
  4. ARTANE [Concomitant]
     Dosage: 2 MG, 3X/DAY
     Route: 048
  5. CARBIDOPA AND LEVODOPA [Concomitant]
     Dosage: 100 MG, 3X/DAY
     Route: 048
  6. SELEGILINE HYDROCHLORIDE [Concomitant]
     Dosage: 2.5 MG, 2X/DAY
     Route: 048
  7. NAPROXEN [Concomitant]
     Dosage: 100 MG, 2X/DAY
     Route: 048
  8. PURSENNID [Concomitant]
     Dosage: 12 MG, SINGLE USE
     Route: 048
  9. SOLITA-T3 INJECTION [Concomitant]
     Dosage: 1500 ML, 1X/DAY
     Route: 042
     Dates: start: 20090909, end: 20090910

REACTIONS (2)
  - EJECTION FRACTION DECREASED [None]
  - HAEMORRHAGE URINARY TRACT [None]
